FAERS Safety Report 11652653 (Version 1)
Quarter: 2015Q4

REPORT INFORMATION
  Report Type: Spontaneous
  Country: US (occurrence: None)
  Receive Date: 20151021
  Receipt Date: 20151021
  Transmission Date: 20160304
  Serious: Yes (Hospitalization)
  Sender: FDA-Public Use
  Company Number: None

PATIENT
  Age: 77 Year
  Sex: Male
  Weight: 99.1 kg

DRUGS (40)
  1. INFLUENZA VACCINE FLUARIX QUAD [Concomitant]
  2. CEFEPIME [Concomitant]
     Active Substance: CEFEPIME HYDROCHLORIDE
  3. CETIRIZINE [Concomitant]
     Active Substance: CETIRIZINE HYDROCHLORIDE
  4. FEROUS SULFATE [Concomitant]
  5. LANTUS [Concomitant]
     Active Substance: INSULIN GLARGINE
  6. HUMALOG [Concomitant]
     Active Substance: INSULIN LISPRO
  7. MORPHINE [Concomitant]
     Active Substance: MORPHINE
  8. RIVAROXABAN [Suspect]
     Active Substance: RIVAROXABAN
     Indication: PULMONARY EMBOLISM
     Route: 048
     Dates: start: 20151014, end: 20151015
  9. AMIODARONE [Concomitant]
     Active Substance: AMIODARONE
  10. ASPIRIN. [Concomitant]
     Active Substance: ASPIRIN
  11. ATORVASTATIN [Concomitant]
     Active Substance: ATORVASTATIN
  12. ROCEPHIN [Concomitant]
     Active Substance: CEFTRIAXONE SODIUM
  13. RIVAROXABAN [Concomitant]
     Active Substance: RIVAROXABAN
  14. SENNA PLUS [Concomitant]
     Active Substance: DOCUSATE SODIUM\SENNOSIDES\SENNOSIDES A AND B
  15. SOTALOL. [Concomitant]
     Active Substance: SOTALOL
  16. NOREPINEPHRINE [Concomitant]
     Active Substance: NOREPINEPHRINE\NOREPINEPHRINE BITARTRATE
  17. NORCO [Concomitant]
     Active Substance: ACETAMINOPHEN\HYDROCODONE BITARTRATE
  18. CALCIUM CARBONATE-VITAMIN D3 [Concomitant]
  19. RESTASIS [Concomitant]
     Active Substance: CYCLOSPORINE
  20. FLUTICASONE [Concomitant]
     Active Substance: FLUTICASONE\FLUTICASONE PROPIONATE
  21. DIOVAN [Concomitant]
     Active Substance: VALSARTAN
  22. FENTANYL. [Concomitant]
     Active Substance: FENTANYL
  23. SOTALOL. [Concomitant]
     Active Substance: SOTALOL
  24. ENOXAPARIN [Concomitant]
     Active Substance: ENOXAPARIN
  25. HEPARIN [Concomitant]
     Active Substance: HEPARIN SODIUM
  26. ZOFRAN [Concomitant]
     Active Substance: ONDANSETRON HYDROCHLORIDE
  27. JANUVIA [Concomitant]
     Active Substance: SITAGLIPTIN PHOSPHATE
  28. NARCAN [Concomitant]
     Active Substance: NALOXONE HYDROCHLORIDE
  29. TRAMADOL. [Concomitant]
     Active Substance: TRAMADOL
  30. FEIBA NF [Concomitant]
     Active Substance: ANTI-INHIBITOR COAGULANT COMPLEX
  31. VENELEX OINTMENT [Concomitant]
  32. FUROSEMIDE. [Concomitant]
     Active Substance: FUROSEMIDE
  33. FLOMAX [Concomitant]
     Active Substance: TAMSULOSIN HYDROCHLORIDE
  34. HEPARIN [Concomitant]
     Active Substance: HEPARIN SODIUM
  35. AZITHROMYCIN [Concomitant]
     Active Substance: AZITHROMYCIN ANHYDROUS
  36. PANTOPRAZOLE [Concomitant]
     Active Substance: PANTOPRAZOLE SODIUM
  37. ALLOPURINOL. [Concomitant]
     Active Substance: ALLOPURINOL
  38. KETAMINE [Concomitant]
     Active Substance: KETAMINE
  39. AMIODARONE [Concomitant]
     Active Substance: AMIODARONE
  40. PROPOFOL. [Concomitant]
     Active Substance: PROPOFOL

REACTIONS (9)
  - Haematemesis [None]
  - Unresponsive to stimuli [None]
  - Cardiac disorder [None]
  - Lethargy [None]
  - Gastric ulcer [None]
  - Nausea [None]
  - Haemoglobin decreased [None]
  - Mental status changes [None]
  - Retching [None]

NARRATIVE: CASE EVENT DATE: 20151014
